FAERS Safety Report 5119704-0 (Version None)
Quarter: 2006Q4

REPORT INFORMATION
  Report Type: 
  Country: None (occurrence: None)
  Receive Date: 20061003
  Receipt Date: 20060919
  Transmission Date: 20070319
  Serious: Yes (Hospitalization)
  Sender: FDA-Public Use
  Company Number: JP-MERCK-0609USA04949

PATIENT
  Age: 64 Year
  Sex: Male

DRUGS (6)
  1. PEPCID RPD [Suspect]
     Route: 048
     Dates: end: 20060812
  2. LIPITOR [Suspect]
     Indication: HYPERCHOLESTEROLAEMIA
     Route: 048
     Dates: end: 20060812
  3. MUCOSOLVAN [Suspect]
     Indication: ASTHMA
     Route: 048
     Dates: end: 20060812
  4. GASCON [Suspect]
     Route: 048
     Dates: end: 20060812
  5. FURSULTIAMINE [Suspect]
     Route: 048
     Dates: end: 20060812
  6. CONIEL [Concomitant]
     Indication: HYPERTENSION
     Route: 065
     Dates: end: 20060812

REACTIONS (8)
  - ALANINE AMINOTRANSFERASE INCREASED [None]
  - ANOREXIA [None]
  - ASPARTATE AMINOTRANSFERASE INCREASED [None]
  - BLOOD ALKALINE PHOSPHATASE INCREASED [None]
  - BLOOD BILIRUBIN INCREASED [None]
  - BLOOD LACTATE DEHYDROGENASE INCREASED [None]
  - GAMMA-GLUTAMYLTRANSFERASE INCREASED [None]
  - LIVER DISORDER [None]
